FAERS Safety Report 20478069 (Version 1)
Quarter: 2022Q1

REPORT INFORMATION
  Report Type: Spontaneous
  Country: US (occurrence: US)
  Receive Date: 20220216
  Receipt Date: 20220216
  Transmission Date: 20220423
  Serious: No
  Sender: FDA-Public Use
  Company Number: US-JNJFOC-20220204570

PATIENT
  Age: 30 Year
  Sex: Female

DRUGS (2)
  1. TYLENOL [Suspect]
     Active Substance: ACETAMINOPHEN
     Indication: Dysmenorrhoea
     Route: 065
  2. COVID-19 VACCINE [Concomitant]
     Indication: Immunisation
     Route: 065
     Dates: start: 20210625

REACTIONS (1)
  - Eye allergy [Unknown]
